FAERS Safety Report 10695786 (Version 8)
Quarter: 2018Q4

REPORT INFORMATION
  Report Type: Spontaneous
  Country: US (occurrence: US)
  Receive Date: 20150107
  Receipt Date: 20181204
  Transmission Date: 20190204
  Serious: No
  Sender: FDA-Public Use
  Company Number: US-PFIZER INC-2014349169

PATIENT
  Age: 69 Year
  Sex: Male
  Weight: 86 kg

DRUGS (13)
  1. RAPAMUNE [Suspect]
     Active Substance: SIROLIMUS
     Indication: LIVER TRANSPLANT
     Dosage: 0.5 MG, 1 DAILY AND 1 MG 1 DAILY
     Route: 048
     Dates: start: 200506
  2. RAPAMUNE [Suspect]
     Active Substance: SIROLIMUS
     Indication: IMMUNOSUPPRESSANT DRUG THERAPY
     Dosage: 1 MG, UNK
     Route: 048
  3. ASPIRIN. [Concomitant]
     Active Substance: ASPIRIN
     Dosage: UNK
     Dates: start: 2007
  4. IRBESARTAN. [Concomitant]
     Active Substance: IRBESARTAN
     Dosage: UNK
     Dates: start: 2005
  5. MVI [Concomitant]
     Active Substance: VITAMINS
     Dosage: UNK
     Dates: start: 2005
  6. CALCIUM [Concomitant]
     Active Substance: CALCIUM
     Dosage: UNK
     Dates: start: 2005
  7. SILDENAFIL. [Concomitant]
     Active Substance: SILDENAFIL
     Dosage: UNK
  8. RAPAMUNE [Suspect]
     Active Substance: SIROLIMUS
     Dosage: 1.5 MG, DAILY (1 MG, TAKE 1 TABLET DAILY; TAKE WITH 0.5 MG FOR TOTAL DOSE OF 1.5 MG DAILY)
  9. ASACOL HD [Concomitant]
     Active Substance: MESALAMINE
     Dosage: UNK
     Dates: start: 1998
  10. OSCAL [Concomitant]
     Active Substance: CALCIUM CARBONATE
     Dosage: UNK
     Dates: start: 2005
  11. RAPAMUNE [Suspect]
     Active Substance: SIROLIMUS
     Indication: CHOLANGIOCARCINOMA
     Dosage: 1.5 MG, 1X/DAY
     Route: 048
     Dates: start: 2005
  12. VITAMIN D [Concomitant]
     Active Substance: CHOLECALCIFEROL
     Dosage: 50000 IU, OCCASIONALLY ONCE A WEEK OR EVERY OTHER WEEK
     Dates: start: 2005
  13. RAPAMUNE [Suspect]
     Active Substance: SIROLIMUS
     Dosage: 1.5 MG, DAILY (0.5 MG, TAKE 1 TABLET DAILY; TAKE WITH 1 MG FOR A TOTAL DOSE OF 1.5 MG DAILY)
     Route: 048

REACTIONS (6)
  - Nasopharyngitis [Recovering/Resolving]
  - Blood creatinine increased [Not Recovered/Not Resolved]
  - Hypertension [Not Recovered/Not Resolved]
  - Product use in unapproved indication [Unknown]
  - Cough [Recovering/Resolving]
  - Malaise [Recovering/Resolving]
